FAERS Safety Report 4990466-0 (Version None)
Quarter: 2006Q2

REPORT INFORMATION
  Report Type: 
  Country: None (occurrence: None)
  Receive Date: 20060427
  Receipt Date: 20060419
  Transmission Date: 20061013
  Serious: Yes (Other)
  Sender: FDA-Public Use
  Company Number: 2006053407

PATIENT
  Sex: Male

DRUGS (1)
  1. LYRICA [Suspect]
     Indication: INTERVERTEBRAL DISC DEGENERATION
     Dosage: 300 MG (150 MG, 2 IN 1 D), ORAL
     Route: 048
     Dates: start: 20060401

REACTIONS (5)
  - AFFECTIVE DISORDER [None]
  - BALANCE DISORDER [None]
  - GAIT DISTURBANCE [None]
  - OVERDOSE [None]
  - SUICIDE ATTEMPT [None]
